FAERS Safety Report 17657671 (Version 2)
Quarter: 2020Q2

REPORT INFORMATION
  Report Type: Report from Study
  Country: None (occurrence: NL)
  Receive Date: 20200411
  Receipt Date: 20200519
  Transmission Date: 20200713
  Serious: Yes (Death, Other)
  Sender: FDA-Public Use
  Company Number: NL-ABBVIE-20K-114-3355691-00

PATIENT
  Age: 77 Year
  Sex: Male

DRUGS (4)
  1. DUODOPA [Suspect]
     Active Substance: CARBIDOPA\LEVODOPA
     Dosage: MD 14.5 CD 5.0 ED 2.5 16 HOUR ADMINISTRATION
     Route: 050
  2. DUODOPA [Suspect]
     Active Substance: CARBIDOPA\LEVODOPA
     Dosage: MD 14.5 CD 4.5 ED 2.5 16 HOUR ADMINISTRATION?STRENGTH (CMP): 20 MG/ML 5 MG/ML
     Route: 050
  3. MADOPAR [Concomitant]
     Active Substance: BENSERAZIDE HYDROCHLORIDE\LEVODOPA
     Indication: PARKINSON^S DISEASE
  4. DUODOPA [Suspect]
     Active Substance: CARBIDOPA\LEVODOPA
     Indication: PARKINSON^S DISEASE
     Dosage: MD 14.5 CD 5.6 ED 2.5 16 HOUR ADMINISTRATION
     Route: 050
     Dates: start: 20151203

REACTIONS (7)
  - General physical health deterioration [Not Recovered/Not Resolved]
  - Hyperkinesia [Not Recovered/Not Resolved]
  - Pneumonia [Fatal]
  - Malaise [Fatal]
  - Dyskinesia [Not Recovered/Not Resolved]
  - Terminal state [Unknown]
  - Respiratory tract infection [Not Recovered/Not Resolved]

NARRATIVE: CASE EVENT DATE: 2020
